FAERS Safety Report 10703209 (Version 2)
Quarter: 2015Q1

REPORT INFORMATION
  Report Type: Spontaneous
  Country: US (occurrence: US)
  Receive Date: 20150112
  Receipt Date: 20150217
  Transmission Date: 20150721
  Serious: Yes (Other)
  Sender: FDA-Public Use
  Company Number: US-AMGEN-USASP2015001349

PATIENT
  Age: 81 Year
  Sex: Female

DRUGS (1)
  1. ENBREL [Suspect]
     Active Substance: ETANERCEPT
     Indication: RHEUMATOID ARTHRITIS
     Dosage: 50 MG, QWK
     Route: 065
     Dates: start: 20060601

REACTIONS (11)
  - Rheumatoid arthritis [Recovered/Resolved]
  - Retinal vein thrombosis [Not Recovered/Not Resolved]
  - Eye laser scar [Not Recovered/Not Resolved]
  - Nasal congestion [Not Recovered/Not Resolved]
  - Fatigue [Not Recovered/Not Resolved]
  - Activities of daily living impaired [Recovered/Resolved]
  - Macular degeneration [Not Recovered/Not Resolved]
  - Dysphonia [Not Recovered/Not Resolved]
  - Abasia [Recovered/Resolved]
  - Blindness [Not Recovered/Not Resolved]
  - Cardiac disorder [Unknown]

NARRATIVE: CASE EVENT DATE: 20150107
